FAERS Safety Report 14519430 (Version 2)
Quarter: 2018Q1

REPORT INFORMATION
  Report Type: Spontaneous
  Country: US (occurrence: US)
  Receive Date: 20180212
  Receipt Date: 20180226
  Transmission Date: 20180509
  Serious: Yes (Other)
  Sender: FDA-Public Use
  Company Number: US-009507513-1802USA003225

PATIENT
  Sex: Female
  Weight: 58.97 kg

DRUGS (6)
  1. METOPROLOL. [Concomitant]
     Active Substance: METOPROLOL
     Indication: BLOOD PRESSURE ABNORMAL
     Dosage: 100 MG, ONCE A DAY
     Route: 048
  2. PRINIVIL [Suspect]
     Active Substance: LISINOPRIL
     Indication: BLOOD PRESSURE ABNORMAL
     Dosage: 40 MG, ONCE DAILY
     Route: 048
     Dates: start: 2017
  3. METOPROLOL. [Concomitant]
     Active Substance: METOPROLOL
     Dosage: 50 MG, TWICE A DAY
     Route: 048
     Dates: start: 2015
  4. PRINIVIL [Suspect]
     Active Substance: LISINOPRIL
     Dosage: 20 MG, ONCE DAILY
     Route: 048
     Dates: end: 2017
  5. TIKOSYN [Suspect]
     Active Substance: DOFETILIDE
     Indication: ATRIAL FIBRILLATION
     Dosage: 350 MICROGRAM, TWICE A DAY
     Route: 048
     Dates: start: 2015
  6. TIKOSYN [Suspect]
     Active Substance: DOFETILIDE
     Dosage: 500 MICROGRAM, TWICE A DAY
     Route: 048
     Dates: start: 2010, end: 2015

REACTIONS (4)
  - Cough [Unknown]
  - Asthma [Unknown]
  - Hypertension [Not Recovered/Not Resolved]
  - Cardiac valve disease [Unknown]

NARRATIVE: CASE EVENT DATE: 2016
